FAERS Safety Report 13690309 (Version 1)
Quarter: 2017Q2

REPORT INFORMATION
  Report Type: Spontaneous
  Country: US (occurrence: US)
  Receive Date: 20170623
  Receipt Date: 20170623
  Transmission Date: 20170830
  Serious: Yes (Hospitalization)
  Sender: FDA-Public Use
  Company Number: None

PATIENT
  Age: 70 Year
  Sex: Male
  Weight: 129.6 kg

DRUGS (2)
  1. APIXABAN [Suspect]
     Active Substance: APIXABAN
     Indication: ATRIAL FIBRILLATION
     Route: 048
     Dates: start: 20160912, end: 20161212
  2. ASPIRIN. [Suspect]
     Active Substance: ASPIRIN

REACTIONS (5)
  - Gastrointestinal haemorrhage [None]
  - Respiratory failure [None]
  - Melaena [None]
  - Dyspnoea [None]
  - Haemorrhage [None]

NARRATIVE: CASE EVENT DATE: 20161212
